FAERS Safety Report 5395052-9 (Version None)
Quarter: 2007Q3

REPORT INFORMATION
  Report Type: 
  Country: None (occurrence: None)
  Receive Date: 20070724
  Receipt Date: 20070720
  Transmission Date: 20080115
  Serious: Yes (Hospitalization)
  Sender: FDA-Public Use
  Company Number: US-BRISTOL-MYERS SQUIBB COMPANY-13840301

PATIENT
  Age: 77 Year
  Sex: Male
  Weight: 75 kg

DRUGS (5)
  1. ERBITUX [Suspect]
     Indication: NEOPLASM MALIGNANT
     Dates: start: 20070705, end: 20070705
  2. ALIMTA [Suspect]
     Indication: NEOPLASM MALIGNANT
     Dates: start: 20070627, end: 20070627
  3. RADIATION THERAPY [Suspect]
     Indication: NEOPLASM MALIGNANT
  4. FOLIC ACID [Concomitant]
     Dates: start: 20070531
  5. VITAMIN B-12 [Concomitant]
     Dates: start: 20070531

REACTIONS (2)
  - DYSPHAGIA [None]
  - FEBRILE NEUTROPENIA [None]
